FAERS Safety Report 19471513 (Version 1)
Quarter: 2021Q2

REPORT INFORMATION
  Report Type: Spontaneous
  Country: JP (occurrence: JP)
  Receive Date: 20210628
  Receipt Date: 20210628
  Transmission Date: 20210717
  Serious: Yes (Other)
  Sender: FDA-Public Use
  Company Number: JP-009507513-2106JPN001813J

PATIENT
  Sex: Female
  Weight: 51 kg

DRUGS (24)
  1. DELTYBA [Suspect]
     Active Substance: DELAMANID
     Indication: PULMONARY TUBERCULOSIS
     Dosage: 100 MILLIGRAM, BID
     Route: 048
     Dates: start: 20180913, end: 20180922
  2. ZYVOX [Suspect]
     Active Substance: LINEZOLID
     Dosage: 600 MILLIGRAM, BID
     Route: 048
     Dates: start: 20180913, end: 20180922
  3. SHIGMABITAN [BENFOTIAMINE;CYANOCOBALAMIN;PYRIDOXINE HYDROCHLORIDE] [Suspect]
     Active Substance: BENFOTIAMINE\CYANOCOBALAMIN\PYRIDOXINE HYDROCHLORIDE
     Dosage: 4 DOSAGE FORM, QD
     Route: 048
  4. LYRICA [Suspect]
     Active Substance: PREGABALIN
     Indication: NEUROPATHY PERIPHERAL
     Dosage: 300 MILLIGRAM, QD
     Route: 048
     Dates: start: 20190921
  5. AZULENE?GLUTAMINE [Suspect]
     Active Substance: GLUTAMINE\SODIUM GUALENATE
     Indication: PULMONARY TUBERCULOSIS
     Dosage: 1.5 GRAM, QD
     Route: 048
  6. CARBOCISTEINE [Suspect]
     Active Substance: CARBOCYSTEINE
     Indication: PULMONARY TUBERCULOSIS
     Dosage: 1500 MILLIGRAM, QD
     Route: 048
  7. EBUTOL [Suspect]
     Active Substance: ETHAMBUTOL HYDROCHLORIDE
     Indication: TUBERCULOSIS
     Dosage: 750 MILLIGRAM, QD
     Route: 048
     Dates: start: 20190701, end: 20191115
  8. SIRTURO [Suspect]
     Active Substance: BEDAQUILINE FUMARATE
     Dosage: 400 MILLIGRAM, QD
     Route: 048
     Dates: start: 20190613
  9. ZYVOX [Suspect]
     Active Substance: LINEZOLID
     Indication: PULMONARY TUBERCULOSIS
     Dosage: UNK
     Route: 065
     Dates: start: 200509
  10. ZYVOX [Suspect]
     Active Substance: LINEZOLID
     Dosage: UNK
     Route: 065
     Dates: start: 201604
  11. ALENDRONATE [Concomitant]
     Active Substance: ALENDRONATE SODIUM
     Dosage: UNK
     Route: 065
     Dates: start: 20200603
  12. TIENAM FOR INTRAVENOUS DRIP INFUSION 0.5G [Suspect]
     Active Substance: CILASTATIN SODIUM\IMIPENEM
     Indication: PULMONARY TUBERCULOSIS
     Dosage: 1000 MILLIGRAM, BID
     Route: 041
     Dates: start: 20180913, end: 20180913
  13. DELTYBA [Suspect]
     Active Substance: DELAMANID
     Dosage: 200 MILLIGRAM, QD
     Route: 048
     Dates: start: 20190606
  14. AUGMENTIN [Suspect]
     Active Substance: AMOXICILLIN\CLAVULANATE POTASSIUM
     Indication: PULMONARY TUBERCULOSIS
     Dosage: 375 MILLIGRAM, TID
     Route: 048
     Dates: start: 20180913, end: 20180922
  15. KANAMYCIN [KANAMYCIN SULFATE] [Suspect]
     Active Substance: KANAMYCIN SULFATE
     Indication: TUBERCULOSIS
     Dosage: 750 MILLIGRAM, QD
     Route: 055
     Dates: start: 20190603, end: 20190710
  16. ZOLPIDEM TARTRATE. [Concomitant]
     Active Substance: ZOLPIDEM TARTRATE
     Dosage: UNK
     Route: 065
  17. TETRAMIDE [Concomitant]
     Active Substance: MIANSERIN
     Dosage: UNK
     Route: 065
     Dates: end: 20200225
  18. SIRTURO [Suspect]
     Active Substance: BEDAQUILINE FUMARATE
     Indication: PULMONARY TUBERCULOSIS
     Dosage: 400 MILLIGRAM, QD
     Route: 048
     Dates: start: 20180913, end: 20180922
  19. LAMPREN [Suspect]
     Active Substance: CLOFAZIMINE
     Indication: PULMONARY TUBERCULOSIS
     Dosage: 100 MILLIGRAM, QD
     Route: 048
     Dates: start: 20180913, end: 20180922
  20. TUBERACTIN [ENVIOMYCIN SULFATE] [Suspect]
     Active Substance: ENVIOMYCIN SULFATE
     Indication: PULMONARY TUBERCULOSIS
     Dosage: 100 MILLIGRAM, QD
     Route: 030
     Dates: start: 20180913, end: 20180922
  21. YOKUKANSAN [Suspect]
     Active Substance: HERBALS
     Indication: PULMONARY TUBERCULOSIS
     Dosage: 7.5 GRAM, QD
     Route: 048
  22. BELSOMRA [Concomitant]
     Active Substance: SUVOREXANT
     Route: 065
  23. EDIROL [Concomitant]
     Active Substance: ELDECALCITOL
     Dosage: UNK
     Route: 048
     Dates: start: 20200521
  24. ZYVOX [Suspect]
     Active Substance: LINEZOLID
     Dosage: 600 MILLIGRAM, BID
     Route: 048
     Dates: start: 20190610, end: 20191103

REACTIONS (9)
  - Neuropathy peripheral [Unknown]
  - Malaise [Recovering/Resolving]
  - Insomnia [Recovering/Resolving]
  - Depression [Recovering/Resolving]
  - Electrocardiogram QT prolonged [Unknown]
  - Hepatic function abnormal [Unknown]
  - Hypoaesthesia oral [Unknown]
  - Visual impairment [Recovering/Resolving]
  - Nausea [Recovered/Resolved]

NARRATIVE: CASE EVENT DATE: 20180913
